FAERS Safety Report 13459724 (Version 1)
Quarter: 2017Q2

REPORT INFORMATION
  Report Type: Report from Study
  Country: US (occurrence: US)
  Receive Date: 20170420
  Receipt Date: 20170420
  Transmission Date: 20170830
  Serious: Yes (Other)
  Sender: FDA-Public Use
  Company Number: US-AMGEN-USASL2017058937

PATIENT
  Age: 71 Year
  Sex: Female

DRUGS (2)
  1. REPATHA [Suspect]
     Active Substance: EVOLOCUMAB
     Indication: HYPERCHOLESTEROLAEMIA
     Dosage: 140 MG, Q2WK
     Route: 065
  2. INSULIN [Concomitant]
     Active Substance: INSULIN NOS

REACTIONS (6)
  - Living in residential institution [Unknown]
  - Blood glucose increased [Unknown]
  - Pain [Unknown]
  - Bronchial obstruction [Unknown]
  - Viral infection [Unknown]
  - Asthenia [Unknown]

NARRATIVE: CASE EVENT DATE: 201703
